FAERS Safety Report 7333975-1 (Version None)
Quarter: 2011Q1

REPORT INFORMATION
  Report Type: 
  Country: None (occurrence: None)
  Receive Date: 20110301
  Receipt Date: 20110301
  Transmission Date: 20110831
  Serious: Yes (Other)
  Sender: FDA-Public Use
  Company Number: None

PATIENT
  Sex: Female
  Weight: 70.2 kg

DRUGS (5)
  1. CYCLOPHOSPHAMIDE [Concomitant]
  2. AVASTIN [Concomitant]
  3. VICODIN [Suspect]
     Indication: PAIN
     Dosage: 7 TAB PO
     Route: 048
     Dates: start: 20110222, end: 20110222
  4. ABRAXANE [Concomitant]
  5. DOXORUBICIN HCL [Concomitant]

REACTIONS (2)
  - BRACHIAL PLEXUS INJURY [None]
  - RADIATION INJURY [None]
